FAERS Safety Report 23738868 (Version 1)
Quarter: 2024Q2

REPORT INFORMATION
  Report Type: Spontaneous
  Country: US (occurrence: US)
  Receive Date: 20240413
  Receipt Date: 20240413
  Transmission Date: 20240715
  Serious: No
  Sender: FDA-Public Use
  Company Number: US-JNJFOC-20240412110

PATIENT
  Sex: Female

DRUGS (1)
  1. MENS ROGAINE EXTRA STRENGTH [Suspect]
     Active Substance: MINOXIDIL
     Indication: Alopecia
     Dosage: PRODUCT DOSE OR QUANTITY: APPLY ABOUT 2 ML EACH TIME
     Route: 061
     Dates: start: 20240308

REACTIONS (2)
  - Off label use [Unknown]
  - Prescribed overdose [Unknown]

NARRATIVE: CASE EVENT DATE: 20240308
